FAERS Safety Report 18166200 (Version 2)
Quarter: 2020Q3

REPORT INFORMATION
  Report Type: Spontaneous
  Country: DE (occurrence: DE)
  Receive Date: 20200818
  Receipt Date: 20200929
  Transmission Date: 20201103
  Serious: Yes (Other)
  Sender: FDA-Public Use
  Company Number: DE-ASCEND THERAPEUTICS US, LLC-2088749

PATIENT
  Age: 30 Year
  Sex: Female
  Weight: 57 kg

DRUGS (15)
  1. FERINJECT (FERRIC CARBOXYMALTOSE), UNKNOWN?UPON NEED/AS NECESSARY (FER [Concomitant]
     Route: 065
  2. CURAZINK (ZINC HISTINATE), UNKNOWN [Concomitant]
     Route: 065
  3. VALSARTAN. [Concomitant]
     Active Substance: VALSARTAN
     Route: 065
  4. L?THYROXIN (LEVOTHYROXINE SODIUM), UNKNOWN [Concomitant]
     Route: 065
  5. GYNOKADIN DOSIERGEL (ESTRADIOL) (GEL)?INDICATION FOR USE: HRT FOR IRRE [Suspect]
     Active Substance: ESTRADIOL HEMIHYDRATE
     Route: 003
     Dates: start: 20200512, end: 20200703
  6. SOTALOL. [Concomitant]
     Active Substance: SOTALOL
     Route: 065
  7. CARVEDILOL. [Concomitant]
     Active Substance: CARVEDILOL
     Route: 065
  8. VITAMIN D [Concomitant]
     Active Substance: VITAMIN D NOS
     Route: 065
  9. ESTROGEL [Suspect]
     Active Substance: ESTRADIOL
     Indication: HORMONE REPLACEMENT THERAPY
     Route: 003
     Dates: start: 20200512, end: 20200703
  10. ESTROGEL [Suspect]
     Active Substance: ESTRADIOL
  11. MAGNESIUM (MAGNESIUM), UNKNOWN [Concomitant]
     Route: 065
  12. FAMENITA (PROGESTERONE), UNKNOWN, UNKNOWN [Concomitant]
     Route: 048
     Dates: start: 20200618, end: 20200703
  13. GYNOKADIN DOSIERGEL (ESTRADIOL) (GEL)?INDICATION FOR USE: HRT FOR IRRE [Suspect]
     Active Substance: ESTRADIOL HEMIHYDRATE
     Route: 003
     Dates: start: 20200512, end: 20200703
  14. EPLERENONE. [Concomitant]
     Active Substance: EPLERENONE
     Route: 065
  15. FAMENITA (PROGESTERONE), UNKNOWN, UNKNOWN [Concomitant]
     Route: 048
     Dates: start: 20200521, end: 20200604

REACTIONS (6)
  - Electrocardiogram QT prolonged [Recovering/Resolving]
  - Dyspnoea [Unknown]
  - Tachycardia [Recovering/Resolving]
  - Ventricular extrasystoles [Recovering/Resolving]
  - Cardiac failure [Recovering/Resolving]
  - Malaise [Unknown]

NARRATIVE: CASE EVENT DATE: 2020
